FAERS Safety Report 19648861 (Version 2)
Quarter: 2021Q3

REPORT INFORMATION
  Report Type: Report from Study
  Country: FR (occurrence: FR)
  Receive Date: 20210803
  Receipt Date: 20210810
  Transmission Date: 20211014
  Serious: Yes (Hospitalization)
  Sender: FDA-Public Use
  Company Number: FR-ROCHE-2878877

PATIENT
  Age: 63 Year
  Sex: Male

DRUGS (5)
  1. ATEZOLIZUMAB. [Suspect]
     Active Substance: ATEZOLIZUMAB
     Indication: PLEURAL MESOTHELIOMA MALIGNANT
     Dosage: MOST RECENT DOSE: 06/JUL/2021
     Route: 041
     Dates: start: 20200728, end: 20210730
  2. CARBOPLATIN. [Suspect]
     Active Substance: CARBOPLATIN
     Indication: PLEURAL MESOTHELIOMA MALIGNANT
     Dosage: MOST RECENT DOSE: 01/OCT/2020
     Route: 042
     Dates: start: 20200728
  3. PEMETREXED. [Suspect]
     Active Substance: PEMETREXED
     Indication: PLEURAL MESOTHELIOMA MALIGNANT
     Dosage: MOST RECENT DOSE: 01/OCT/2020
     Route: 042
     Dates: start: 20200728
  4. BEVACIZUMAB. [Suspect]
     Active Substance: BEVACIZUMAB
     Indication: PLEURAL MESOTHELIOMA MALIGNANT
     Dosage: MOST RECENT DOSE: 06/JUL/2021
     Route: 042
     Dates: start: 20200728
  5. CORTANCYL [Concomitant]
     Active Substance: PREDNISONE

REACTIONS (1)
  - Anaemia [Recovering/Resolving]

NARRATIVE: CASE EVENT DATE: 20210723
